FAERS Safety Report 16616928 (Version 1)
Quarter: 2019Q3

REPORT INFORMATION
  Report Type: Report from Study
  Country: US (occurrence: US)
  Receive Date: 20190723
  Receipt Date: 20190723
  Transmission Date: 20191004
  Serious: Yes (Other)
  Sender: FDA-Public Use
  Company Number: US-ROCHE-2358557

PATIENT
  Sex: Male
  Weight: 85 kg

DRUGS (1)
  1. HEMLIBRA [Suspect]
     Active Substance: EMICIZUMAB-KXWH
     Indication: ACQUIRED HAEMOPHILIA
     Dosage: INJECT VIAL 120 MG (0.8 ML) SUBCUTANEOUSLY EVERY WEEK
     Route: 058

REACTIONS (2)
  - Infection [Unknown]
  - Shoulder operation [Unknown]
